FAERS Safety Report 22200156 (Version 1)
Quarter: 2023Q2

REPORT INFORMATION
  Report Type: Spontaneous
  Country: US (occurrence: US)
  Receive Date: 20230412
  Receipt Date: 20230412
  Transmission Date: 20230721
  Serious: Yes (Hospitalization, Other)
  Sender: FDA-Public Use
  Company Number: US-GBT-021561

PATIENT
  Sex: Female

DRUGS (2)
  1. OXBRYTA [Suspect]
     Active Substance: VOXELOTOR
     Indication: Sickle cell disease
     Route: 048
     Dates: start: 20220518
  2. ADAKVEO [Suspect]
     Active Substance: CRIZANLIZUMAB-TMCA

REACTIONS (8)
  - Acute chest syndrome [Unknown]
  - Product dose omission issue [Unknown]
  - Eye disorder [Unknown]
  - Dizziness [Recovered/Resolved]
  - Pruritus [Unknown]
  - Sickle cell anaemia with crisis [Unknown]
  - Abdominal discomfort [Unknown]
  - Fatigue [Recovered/Resolved]
